FAERS Safety Report 6931438-6 (Version None)
Quarter: 2010Q3

REPORT INFORMATION
  Report Type: 
  Country: None (occurrence: None)
  Receive Date: 20100819
  Receipt Date: 20100810
  Transmission Date: 20110219
  Serious: No
  Sender: FDA-Public Use
  Company Number: US-US-EMD SERONO, INC.-7014029

PATIENT
  Sex: Female

DRUGS (1)
  1. REBIF [Suspect]
     Indication: PRODUCT USED FOR UNKNOWN INDICATION
     Route: 058
     Dates: start: 20100607

REACTIONS (9)
  - BLOOD POTASSIUM INCREASED [None]
  - DEPRESSION [None]
  - EATING DISORDER [None]
  - HYPOGLYCAEMIC SEIZURE [None]
  - INAPPROPRIATE SCHEDULE OF DRUG ADMINISTRATION [None]
  - INJECTION SITE ERYTHEMA [None]
  - NAUSEA [None]
  - SUICIDAL IDEATION [None]
  - VOMITING [None]
